FAERS Safety Report 19367627 (Version 1)
Quarter: 2021Q2

REPORT INFORMATION
  Report Type: Spontaneous
  Country: CN (occurrence: CN)
  Receive Date: 20210603
  Receipt Date: 20210603
  Transmission Date: 20210717
  Serious: Yes (Hospitalization, Disabling, Other)
  Sender: FDA-Public Use
  Company Number: CN-PFIZER INC-2021585544

PATIENT
  Age: 65 Year
  Sex: Female
  Weight: 58 kg

DRUGS (8)
  1. PHARMORUBICIN [Suspect]
     Active Substance: EPIRUBICIN
     Indication: BREAST CANCER
     Dosage: 140 MG, 1X/DAY
     Route: 041
     Dates: start: 20201230, end: 20201230
  2. CYCLOPHOSPHAMIDE. [Concomitant]
     Active Substance: CYCLOPHOSPHAMIDE
     Dosage: 0.9 G
     Dates: start: 20210121, end: 20210121
  3. CYCLOPHOSPHAMIDE. [Concomitant]
     Active Substance: CYCLOPHOSPHAMIDE
     Dosage: 0.9 G
     Dates: start: 20210304, end: 20210304
  4. PHARMORUBICIN [Suspect]
     Active Substance: EPIRUBICIN
     Dosage: 140 MG, 1X/DAY
     Dates: start: 20210121, end: 20210121
  5. PHARMORUBICIN [Suspect]
     Active Substance: EPIRUBICIN
     Dosage: 140 MG, 1X/DAY
     Dates: start: 20210209, end: 20210209
  6. PHARMORUBICIN [Suspect]
     Active Substance: EPIRUBICIN
     Dosage: 140 MG, 1X/DAY
     Dates: start: 20210304, end: 20210304
  7. CYCLOPHOSPHAMIDE. [Concomitant]
     Active Substance: CYCLOPHOSPHAMIDE
     Indication: BREAST CANCER
     Dosage: 0.9 G
     Dates: start: 20201230, end: 20201230
  8. CYCLOPHOSPHAMIDE. [Concomitant]
     Active Substance: CYCLOPHOSPHAMIDE
     Dosage: 0.9 G
     Dates: start: 20210209, end: 20210209

REACTIONS (1)
  - Renal failure [Recovering/Resolving]

NARRATIVE: CASE EVENT DATE: 20210106
